FAERS Safety Report 8057485-1 (Version None)
Quarter: 2012Q1

REPORT INFORMATION
  Report Type: 
  Country: None (occurrence: None)
  Receive Date: 20120119
  Receipt Date: 20120105
  Transmission Date: 20120608
  Serious: Yes (Hospitalization, Disabling, Other)
  Sender: FDA-Public Use
  Company Number: US-MERCK-1007USA01783

PATIENT
  Age: 50 Year
  Sex: Female

DRUGS (4)
  1. FOSAMAX [Suspect]
     Indication: OSTEOPENIA
     Route: 048
     Dates: start: 20051130, end: 20060718
  2. FOSAMAX [Suspect]
     Route: 048
     Dates: start: 20080515, end: 20091230
  3. FOSAMAX PLUS D [Suspect]
     Indication: OSTEOPENIA
     Route: 048
     Dates: start: 20060819, end: 20080414
  4. FOSAMAX [Suspect]
     Route: 048
     Dates: start: 20010601, end: 20051101

REACTIONS (31)
  - MYALGIA [None]
  - MULTIPLE INJURIES [None]
  - CALCULUS URETERIC [None]
  - FEMUR FRACTURE [None]
  - BONE DISORDER [None]
  - SKIN WRINKLING [None]
  - DIVERTICULITIS [None]
  - HEPATIC STEATOSIS [None]
  - FALL [None]
  - SEASONAL ALLERGY [None]
  - PANCREATIC CYST [None]
  - OVARIAN CALCIFICATION [None]
  - MESENTERITIS [None]
  - LOW TURNOVER OSTEOPATHY [None]
  - GAIT DISTURBANCE [None]
  - INSOMNIA [None]
  - INFECTION [None]
  - HYPERCHOLESTEROLAEMIA [None]
  - CARDIAC MURMUR [None]
  - PATHOLOGICAL FRACTURE [None]
  - FEAR [None]
  - OSTEOPOROSIS [None]
  - BREAST CANCER [None]
  - CHOLELITHIASIS [None]
  - STRESS FRACTURE [None]
  - VERTIGO [None]
  - GASTRITIS [None]
  - NEPHROLITHIASIS [None]
  - HEPATIC CIRRHOSIS [None]
  - HYPERTENSION [None]
  - FATIGUE [None]
